FAERS Safety Report 7020265-X (Version None)
Quarter: 2010Q3

REPORT INFORMATION
  Report Type: 
  Country: None (occurrence: None)
  Receive Date: 20100927
  Receipt Date: 20100910
  Transmission Date: 20110219
  Serious: Yes (Other)
  Sender: FDA-Public Use
  Company Number: ACO_01138_2010

PATIENT
  Sex: Female
  Weight: 95.2554 kg

DRUGS (23)
  1. AMPYRA [Suspect]
     Indication: PRODUCT USED FOR UNKNOWN INDICATION
     Dosage: 10 MG BID ORAL, 10 MG QD ORAL
     Route: 048
     Dates: start: 20100518, end: 20100605
  2. AMPYRA [Suspect]
     Indication: PRODUCT USED FOR UNKNOWN INDICATION
     Dosage: 10 MG BID ORAL, 10 MG QD ORAL
     Route: 048
     Dates: start: 20100605
  3. TYSABRI [Suspect]
     Indication: PRODUCT USED FOR UNKNOWN INDICATION
     Dosage: SEE IMAGE
     Route: 042
     Dates: start: 20091001
  4. TYSABRI [Suspect]
     Indication: PRODUCT USED FOR UNKNOWN INDICATION
     Dosage: SEE IMAGE
     Route: 042
     Dates: start: 20100708
  5. ACETAMINOPHEN AND HYDROCODONE BITARTRATE [Concomitant]
  6. LISINOPRIL [Concomitant]
  7. LASIX [Concomitant]
  8. K-DUR [Concomitant]
  9. AMANTADINE [Concomitant]
  10. ALBUTEROL SULFATE [Concomitant]
  11. BACLOFEN [Concomitant]
  12. WELLBUTRIN XL [Concomitant]
  13. FENTANYL [Concomitant]
  14. FLONASE [Concomitant]
  15. HYDROCHLOROTHIAZIDE [Concomitant]
  16. INEXIUM /01479302/ [Concomitant]
  17. SUMATRIPTAN SUCCINATE [Concomitant]
  18. VALIUM [Concomitant]
  19. TIZANIDINE HCL [Concomitant]
  20. ARMODAFINIL [Concomitant]
  21. BETASERON [Concomitant]
  22. CO-GESIC /000607101/ [Concomitant]
  23. AMBIEN [Concomitant]

REACTIONS (13)
  - ASTHENIA [None]
  - CONVULSION [None]
  - FATIGUE [None]
  - HEADACHE [None]
  - HYPOTENSION [None]
  - MALAISE [None]
  - MULTIPLE SCLEROSIS RELAPSE [None]
  - MUSCULAR WEAKNESS [None]
  - PAIN IN EXTREMITY [None]
  - STRESS [None]
  - SYNCOPE [None]
  - TONGUE BITING [None]
  - TREMOR [None]
